FAERS Safety Report 5571592-4 (Version None)
Quarter: 2007Q4

REPORT INFORMATION
  Report Type: 
  Country: None (occurrence: None)
  Receive Date: 20071221
  Receipt Date: 20071219
  Transmission Date: 20080405
  Serious: Yes (Hospitalization)
  Sender: FDA-Public Use
  Company Number: HQWYE547830MAR05

PATIENT
  Sex: Male
  Weight: 84.22 kg

DRUGS (9)
  1. RAPAMUNE [Suspect]
     Indication: PROPHYLAXIS AGAINST TRANSPLANT REJECTION
     Route: 048
     Dates: start: 20040926
  2. PREDNISONE [Suspect]
     Indication: PROPHYLAXIS AGAINST TRANSPLANT REJECTION
     Route: 048
  3. PEPCID [Concomitant]
  4. HUMALOG [Concomitant]
     Dosage: 4 UNITS WITH MEALS
  5. LOPRESSOR [Concomitant]
  6. COZAAR [Concomitant]
  7. HUMULIN N [Concomitant]
     Dosage: 6 UNITS IN THE AM AND 14 UNITS IN THE PM
  8. CELLCEPT [Suspect]
     Indication: PROPHYLAXIS AGAINST TRANSPLANT REJECTION
     Route: 048
  9. SEPTRA [Concomitant]
     Route: 048

REACTIONS (1)
  - DEEP VEIN THROMBOSIS [None]
